FAERS Safety Report 10935978 (Version 1)
Quarter: 2015Q1

REPORT INFORMATION
  Report Type: Spontaneous
  Country: BE (occurrence: BE)
  Receive Date: 20150320
  Receipt Date: 20150320
  Transmission Date: 20150721
  Serious: Yes (Other)
  Sender: FDA-Public Use
  Company Number: BE-JNJFOC-20150305210

PATIENT
  Age: 43 Year
  Sex: Female

DRUGS (4)
  1. DOXORUBICIN HYDROCHLORIDE. [Suspect]
     Active Substance: DOXORUBICIN HYDROCHLORIDE
     Indication: HODGKIN^S DISEASE
     Route: 065
  2. BLEOMYCIN [Suspect]
     Active Substance: BLEOMYCIN SULFATE
     Indication: HODGKIN^S DISEASE
     Route: 065
  3. DACARBAZINE. [Suspect]
     Active Substance: DACARBAZINE
     Indication: HODGKIN^S DISEASE
     Route: 065
  4. VINBLASTIN [Suspect]
     Active Substance: VINBLASTINE
     Indication: HODGKIN^S DISEASE
     Route: 065

REACTIONS (8)
  - Coronary artery stenosis [Recovered/Resolved]
  - Ejection fraction decreased [Recovered/Resolved]
  - Coronary artery occlusion [Recovered/Resolved]
  - Dilatation ventricular [Recovered/Resolved]
  - Mitral valve calcification [Recovered/Resolved]
  - Aortic valve stenosis [Recovered/Resolved]
  - Aortic valve incompetence [Recovered/Resolved]
  - Mitral valve incompetence [Recovered/Resolved]
